FAERS Safety Report 9523158 (Version 1)
Quarter: 2013Q3

REPORT INFORMATION
  Report Type: Spontaneous
  Country: US (occurrence: US)
  Receive Date: 20130913
  Receipt Date: 20130913
  Transmission Date: 20140515
  Serious: Yes (Other)
  Sender: FDA-Public Use
  Company Number: US-GLAXOSMITHKLINE-A1035409A

PATIENT
  Age: 65 Year
  Sex: Male
  Weight: 71.8 kg

DRUGS (19)
  1. VOTRIENT [Suspect]
     Indication: RENAL CELL CARCINOMA
     Dosage: 800MG PER DAY
     Route: 048
     Dates: start: 20130425
  2. DECADRON [Suspect]
     Indication: PRODUCT USED FOR UNKNOWN INDICATION
     Dosage: 8MG PER DAY
     Route: 065
  3. POTASSIUM CITRATE [Concomitant]
  4. TAMSULOSIN [Concomitant]
  5. VENLAFAXINE [Concomitant]
  6. AMLODIPINE BESILATE [Concomitant]
  7. DEXAMETHASONE [Concomitant]
  8. VITAMIN D [Concomitant]
  9. ATIVAN [Concomitant]
  10. ZOFRAN [Concomitant]
  11. SUTENT [Concomitant]
     Indication: RENAL CELL CARCINOMA
     Dates: start: 201212
  12. BABY ASPIRIN [Concomitant]
  13. FLOMAX [Concomitant]
  14. OXYGEN [Concomitant]
  15. TYLENOL [Concomitant]
  16. ALBUTEROL [Concomitant]
  17. CEPHALEXIN [Concomitant]
  18. HYDROMORPHONE [Concomitant]
  19. LANSOPRAZOLE [Concomitant]

REACTIONS (38)
  - VIIth nerve paralysis [Unknown]
  - Diarrhoea [Not Recovered/Not Resolved]
  - Upper-airway cough syndrome [Not Recovered/Not Resolved]
  - Increased upper airway secretion [Not Recovered/Not Resolved]
  - Dysphonia [Not Recovered/Not Resolved]
  - Dysgeusia [Not Recovered/Not Resolved]
  - Oedema peripheral [Not Recovered/Not Resolved]
  - Joint swelling [Not Recovered/Not Resolved]
  - Blood creatinine increased [Not Recovered/Not Resolved]
  - Fall [Unknown]
  - Fatigue [Unknown]
  - Blood pressure increased [Recovering/Resolving]
  - Nausea [Recovered/Resolved]
  - Headache [Unknown]
  - Hypersomnia [Unknown]
  - Oral pain [Unknown]
  - Peroneal nerve palsy [Recovering/Resolving]
  - Stomatitis [Unknown]
  - Vertigo [Unknown]
  - Hypoaesthesia [Unknown]
  - Hypoaesthesia oral [Unknown]
  - Vision blurred [Unknown]
  - Laceration [Unknown]
  - Balance disorder [Unknown]
  - Excoriation [Unknown]
  - Swelling [Unknown]
  - Muscular weakness [Unknown]
  - Decreased appetite [Unknown]
  - Weight decreased [Unknown]
  - Asthenia [Unknown]
  - Pallor [Unknown]
  - Coordination abnormal [Unknown]
  - Neuropathy peripheral [Unknown]
  - Aspartate aminotransferase increased [Unknown]
  - Alanine aminotransferase increased [Unknown]
  - Protein total decreased [Unknown]
  - Transient ischaemic attack [Unknown]
  - Dizziness [Unknown]
